FAERS Safety Report 17519851 (Version 1)
Quarter: 2020Q1

REPORT INFORMATION
  Report Type: Spontaneous
  Country: US (occurrence: US)
  Receive Date: 20200309
  Receipt Date: 20200309
  Transmission Date: 20200409
  Serious: No
  Sender: FDA-Public Use
  Company Number: None

PATIENT
  Age: 58 Year
  Sex: Male
  Weight: 153.9 kg

DRUGS (20)
  1. FUROSEMIDE. [Concomitant]
     Active Substance: FUROSEMIDE
  2. ASPIRIN. [Concomitant]
     Active Substance: ASPIRIN
  3. SENNA LAXATIVE [Concomitant]
     Active Substance: SENNOSIDES
  4. LIDOCAINE-PRILOCAINE [Concomitant]
     Active Substance: LIDOCAINE\PRILOCAINE
  5. TRAZODONE [Concomitant]
     Active Substance: TRAZODONE HYDROCHLORIDE
  6. CLINDAMYCIN. [Concomitant]
     Active Substance: CLINDAMYCIN
  7. LEVOTHYROXINE. [Concomitant]
     Active Substance: LEVOTHYROXINE
  8. ELIQUIS [Concomitant]
     Active Substance: APIXABAN
  9. DULOXETINE. [Concomitant]
     Active Substance: DULOXETINE
  10. CENTRUM SILVER [Concomitant]
     Active Substance: MINERALS\VITAMINS
  11. CETAPHIL [Concomitant]
  12. MUPIROCIN. [Concomitant]
     Active Substance: MUPIROCIN
  13. SUTENT [Suspect]
     Active Substance: SUNITINIB MALATE
     Indication: RENAL CANCER
     Route: 048
     Dates: start: 20190824, end: 20200309
  14. AMLODIPINE [Concomitant]
     Active Substance: AMLODIPINE BESYLATE
  15. OXYCODONE [Concomitant]
     Active Substance: OXYCODONE
  16. METOPROLOL. [Concomitant]
     Active Substance: METOPROLOL
  17. SIMVASTATIN. [Concomitant]
     Active Substance: SIMVASTATIN
  18. ZINC OXIDE. [Concomitant]
     Active Substance: ZINC OXIDE
  19. MULTIVITAMIN [Concomitant]
     Active Substance: VITAMINS
  20. ONDANSETRON [Concomitant]
     Active Substance: ONDANSETRON

REACTIONS (1)
  - Disease progression [None]

NARRATIVE: CASE EVENT DATE: 20200309
